FAERS Safety Report 8818013 (Version 2)
Quarter: 2013Q1

REPORT INFORMATION
  Report Type: Report from Study
  Country: DE (occurrence: DE)
  Receive Date: 20121001
  Receipt Date: 20130219
  Transmission Date: 20140127
  Serious: Yes (Other)
  Sender: FDA-Public Use
  Company Number: DE-ROCHE-1113191

PATIENT
  Age: 61 Year
  Sex: Male
  Weight: 66 kg

DRUGS (18)
  1. VEMURAFENIB [Suspect]
     Indication: MALIGNANT MELANOMA
     Route: 048
     Dates: start: 20111215, end: 20120104
  2. VEMURAFENIB [Suspect]
     Dosage: LAST DOSE PRIOR TO SAE:29/MAR/2012
     Route: 048
     Dates: start: 20120202
  3. METFORMIN [Concomitant]
     Route: 065
     Dates: start: 2010
  4. AMPHO MORONAL [Concomitant]
     Route: 065
     Dates: start: 20120301
  5. RAMIPRIL [Concomitant]
     Dosage: TDD: 5/25 MG
     Route: 065
     Dates: start: 2008
  6. FUROSEMIDE [Concomitant]
     Route: 065
     Dates: start: 201111
  7. LYRICA [Concomitant]
     Route: 065
     Dates: start: 20111219
  8. OMEPRAZOL [Concomitant]
     Route: 065
     Dates: start: 20111228
  9. EMEND [Concomitant]
     Route: 065
     Dates: start: 20111214
  10. MORONAL [Concomitant]
     Dosage: 4 PPT
     Route: 065
     Dates: start: 201111
  11. MOVICOL [Concomitant]
     Dosage: SACHET
     Route: 065
     Dates: start: 20111216
  12. LAXOBERAL [Concomitant]
     Dosage: 30 DROPS
     Route: 065
     Dates: start: 20111215
  13. HALDOL [Concomitant]
     Dosage: 18 DROPS
     Route: 065
     Dates: start: 20111219
  14. PALLADON [Concomitant]
     Route: 065
     Dates: start: 20111212
  15. FORTECORTIN [Concomitant]
     Route: 065
     Dates: start: 20111216
  16. UREA [Concomitant]
     Dosage: APP
     Route: 065
     Dates: start: 20120301
  17. CETIRIZIN [Concomitant]
     Dosage: MG
     Route: 065
     Dates: start: 20120301
  18. ALLERGODIL [Concomitant]
     Route: 065
     Dates: start: 20120329

REACTIONS (1)
  - Neuroendocrine carcinoma of the skin [Recovered/Resolved]
